FAERS Safety Report 4283356-2 (Version None)
Quarter: 2004Q1

REPORT INFORMATION
  Report Type: 
  Country: None (occurrence: None)
  Receive Date: 20040129
  Receipt Date: 20040115
  Transmission Date: 20041129
  Serious: Yes (Death, Hospitalization)
  Sender: FDA-Public Use
  Company Number: 2004003207

PATIENT
  Age: 54 Year
  Sex: Female

DRUGS (2)
  1. VIAGRA [Suspect]
     Indication: PULMONARY HYPERTENSION
     Dosage: 50-75 MG (QID),ORAL
     Route: 048
     Dates: end: 20031203
  2. ANTICHOLINERGICS [Concomitant]

REACTIONS (3)
  - MEDICATION ERROR [None]
  - RETROPERITONEAL HAEMORRHAGE [None]
  - RIGHT VENTRICULAR FAILURE [None]
